FAERS Safety Report 4951302-1 (Version None)
Quarter: 2006Q1

REPORT INFORMATION
  Report Type: 
  Country: None (occurrence: None)
  Receive Date: 20060317
  Receipt Date: 20060306
  Transmission Date: 20060701
  Serious: Yes (Hospitalization, Disabling, Other)
  Sender: FDA-Public Use
  Company Number: 2005JP001846

PATIENT
  Age: 44 Year
  Sex: Male
  Weight: 60 kg

DRUGS (19)
  1. FUNGUARD                        (MICAFUNGIN) [Suspect]
     Indication: PYREXIA
     Dosage: 150 MG, UID/QD, IV DRIP
     Route: 041
     Dates: start: 20050513, end: 20050515
  2. TARGOCID [Suspect]
     Indication: PYREXIA
     Dosage: 200 MG, BID, IV DRIP; SEE IMAGE
     Route: 041
     Dates: start: 20050502, end: 20050506
  3. TARGOCID [Suspect]
     Indication: PYREXIA
     Dosage: 200 MG, BID, IV DRIP; SEE IMAGE
     Route: 041
     Dates: start: 20050511, end: 20050513
  4. VANCOMYCIN HYDROCHLORIDE [Suspect]
     Indication: PYREXIA
     Dosage: 1 G, BID, IV DRIP
     Route: 041
     Dates: start: 20050513, end: 20050515
  5. MEROPENEM                   (MEROPENEM) [Suspect]
     Indication: PYREXIA
     Dosage: 0.5 G, BID, IV DRIP; SEE IMAGE
     Route: 041
     Dates: start: 20050502, end: 20050506
  6. MEROPENEM                   (MEROPENEM) [Suspect]
     Indication: PYREXIA
     Dosage: 0.5 G, BID, IV DRIP; SEE IMAGE
     Route: 041
     Dates: start: 20050511, end: 20050513
  7. FLUMARIN                   (FLOMOXEF SODIUM) [Concomitant]
  8. EXACIN                    (ISEPAMICIN SULFATE) [Concomitant]
  9. CIPROXACN           (CIPROFLOXACIN HYDROCHLORIDE) [Concomitant]
  10. CEFAZOLIN [Concomitant]
  11. CALONAL [Concomitant]
  12. FLOMOX      (CEFCAPENE PIVOXIL HYDROCHLORIDE) [Concomitant]
  13. LOXONIN (LOXOPROFEN SODIUM) [Concomitant]
  14. MUCOSTA    (REBAMIPIDE) [Concomitant]
  15. TATHION    (GLUTATHIONE) [Concomitant]
  16. SOSEGON       (PENTAZOCINE) [Concomitant]
  17. RABEPRAZOLE SODIUM [Concomitant]
  18. BIOFERMIN R                          (STREPTOCOCCUS FAECALIS) [Concomitant]
  19. PROHEPARUM               (CYSTEINE, LIVER HYDROLYSTATE, INOSITOL, CHOL [Concomitant]

REACTIONS (6)
  - DISSEMINATED INTRAVASCULAR COAGULATION [None]
  - INTERSTITIAL LUNG DISEASE [None]
  - LIVER DISORDER [None]
  - PLEURAL EFFUSION [None]
  - POST PROCEDURAL COMPLICATION [None]
  - PULMONARY OEDEMA [None]
